FAERS Safety Report 13171006 (Version 3)
Quarter: 2017Q1

REPORT INFORMATION
  Report Type: Report from Study
  Country: US (occurrence: US)
  Receive Date: 20170201
  Receipt Date: 20170329
  Transmission Date: 20170428
  Serious: Yes (Hospitalization)
  Sender: FDA-Public Use
  Company Number: US-BIOGEN-2017BI00350993

PATIENT
  Age: 63 Year
  Sex: Male

DRUGS (8)
  1. FLOMAX [Concomitant]
     Active Substance: TAMSULOSIN HYDROCHLORIDE
     Indication: PRODUCT USED FOR UNKNOWN INDICATION
     Route: 048
     Dates: start: 20170117
  2. KETOROLAC [Concomitant]
     Active Substance: KETOROLAC\KETOROLAC TROMETHAMINE
     Indication: PRODUCT USED FOR UNKNOWN INDICATION
     Route: 065
     Dates: start: 20170107
  3. VITAMIN D [Concomitant]
     Active Substance: CHOLECALCIFEROL
     Indication: PRODUCT USED FOR UNKNOWN INDICATION
     Route: 048
     Dates: start: 20140610
  4. AVONEX [Suspect]
     Active Substance: INTERFERON BETA-1A
     Indication: RELAPSING-REMITTING MULTIPLE SCLEROSIS
     Route: 030
     Dates: start: 2000
  5. AVONEX [Suspect]
     Active Substance: INTERFERON BETA-1A
     Route: 065
  6. AVONEX [Suspect]
     Active Substance: INTERFERON BETA-1A
     Route: 030
     Dates: start: 20151012
  7. AVONEX [Suspect]
     Active Substance: INTERFERON BETA-1A
     Route: 030
     Dates: start: 20140610
  8. LOSARTAN POTASSIUM HCTZ [Concomitant]
     Indication: PRODUCT USED FOR UNKNOWN INDICATION
     Dosage: 100/12.5
     Route: 065
     Dates: start: 20150128

REACTIONS (8)
  - Urinary tract infection [Unknown]
  - Ureterolithiasis [Recovered/Resolved]
  - Procedural pain [Unknown]
  - Urinary retention [Unknown]
  - Acute kidney injury [Unknown]
  - Prescribed overdose [Unknown]
  - Prostatomegaly [Unknown]
  - Hydronephrosis [Unknown]

NARRATIVE: CASE EVENT DATE: 20170107
